FAERS Safety Report 24065034 (Version 1)
Quarter: 2024Q3

REPORT INFORMATION
  Report Type: Spontaneous
  Country: US (occurrence: None)
  Receive Date: 20240708
  Receipt Date: 20240708
  Transmission Date: 20241017
  Serious: Yes (Life-Threatening, Disabling)
  Sender: Public
  Company Number: None

PATIENT
  Age: 37 Year
  Sex: Male
  Weight: 81 kg

DRUGS (2)
  1. PROPECIA [Suspect]
     Active Substance: FINASTERIDE
     Indication: Prophylaxis
     Dosage: 1 TABLET DAILY ORAL?
     Route: 048
     Dates: start: 20090922, end: 20110404
  2. PROPECIA [Suspect]
     Active Substance: FINASTERIDE
     Indication: Alopecia

REACTIONS (13)
  - Suicidal ideation [None]
  - Suicide attempt [None]
  - Amnesia [None]
  - Nervous system disorder [None]
  - Loss of libido [None]
  - Anhedonia [None]
  - Gastrointestinal disorder [None]
  - Muscle spasms [None]
  - Tinnitus [None]
  - Genital pain [None]
  - Depression [None]
  - Anxiety [None]
  - Endocrine test abnormal [None]

NARRATIVE: CASE EVENT DATE: 20110404
